FAERS Safety Report 9617758 (Version 3)
Quarter: 2014Q1

REPORT INFORMATION
  Report Type: Spontaneous
  Country: RO (occurrence: RO)
  Receive Date: 20131011
  Receipt Date: 20140113
  Transmission Date: 20141002
  Serious: Yes (Hospitalization, Other)
  Sender: FDA-Public Use
  Company Number: RO-ELI_LILLY_AND_COMPANY-RO201310001530

PATIENT
  Age: 28 Year
  Sex: Female

DRUGS (2)
  1. ZYPADHERA [Suspect]
     Indication: SCHIZOPHRENIA, PARANOID TYPE
     Dosage: UNK UNK, UNKNOWN
     Route: 065
     Dates: start: 20120425
  2. ZYPADHERA [Suspect]
     Dosage: 300 MG, MONTHLY (1/M)
     Route: 065

REACTIONS (2)
  - Thrombophlebitis [Recovering/Resolving]
  - Injection site abscess [Recovering/Resolving]
